FAERS Safety Report 9818504 (Version 1)
Quarter: 2014Q1

REPORT INFORMATION
  Report Type: Spontaneous
  Country: US (occurrence: None)
  Receive Date: 20140114
  Receipt Date: 20140114
  Transmission Date: 20141002
  Serious: Yes (Death)
  Sender: FDA-Public Use
  Company Number: None

PATIENT
  Sex: 0

DRUGS (2)
  1. TARCEVA [Suspect]
     Indication: BRONCHIAL CARCINOMA
     Route: 048
     Dates: start: 20131206, end: 20140109
  2. TARCEVA [Suspect]
     Indication: LUNG NEOPLASM MALIGNANT
     Route: 048
     Dates: start: 20131206, end: 20140109

REACTIONS (1)
  - Death [None]
